FAERS Safety Report 13566427 (Version 1)
Quarter: 2017Q2

REPORT INFORMATION
  Report Type: Spontaneous
  Country: US (occurrence: US)
  Receive Date: 20170521
  Receipt Date: 20170521
  Transmission Date: 20170830
  Serious: Yes (Other)
  Sender: FDA-Public Use
  Company Number: US-JNJFOC-20170509972

PATIENT
  Age: 37 Year
  Sex: Female

DRUGS (2)
  1. PEROXIDE [Suspect]
     Active Substance: HYDROGEN PEROXIDE
     Indication: STOMATITIS
     Route: 065
     Dates: start: 201705
  2. LISTERINE TOTAL CARE STAIN REMOVER ANTI CAVITY FRESHMINT [Suspect]
     Active Substance: SODIUM FLUORIDE
     Indication: PRODUCT USED FOR UNKNOWN INDICATION
     Dosage: DOSE: 1/2 CAPFUL, ONE TIME
     Route: 048
     Dates: start: 20170505, end: 20170505

REACTIONS (5)
  - Stomatitis [Not Recovered/Not Resolved]
  - Feeding disorder [Not Recovered/Not Resolved]
  - Paraesthesia oral [Not Recovered/Not Resolved]
  - Mouth swelling [Not Recovered/Not Resolved]
  - Chemical burn of gastrointestinal tract [Not Recovered/Not Resolved]

NARRATIVE: CASE EVENT DATE: 201705
